FAERS Safety Report 7639006 (Version 6)
Quarter: 2013Q2

REPORT INFORMATION
  Report Type: Spontaneous
  Country: US (occurrence: US)
  Receive Date: 20101025
  Receipt Date: 20130412
  Transmission Date: 20140414
  Serious: Yes (Other)
  Sender: FDA-Public Use
  Company Number: US-PFIZER INC-2010130836

PATIENT
  Age: 57 Year
  Sex: Female
  Weight: 58.96 kg

DRUGS (9)
  1. LYRICA [Suspect]
     Indication: GENERALISED ANXIETY DISORDER
     Dosage: 25 MG, 2X/DAY
     Route: 048
     Dates: start: 2008
  2. LYRICA [Suspect]
     Indication: ABDOMINAL PAIN UPPER
     Dosage: 50 MG, 2X/DAY
     Route: 048
     Dates: start: 2009
  3. LYRICA [Suspect]
     Indication: NEURALGIA
     Dosage: 75 MG, 2X/DAY
     Route: 048
  4. LYRICA [Suspect]
     Indication: PAIN
  5. KLONOPIN [Concomitant]
     Indication: ANXIETY
     Dosage: 1 MG, 2X/DAY
  6. KLONOPIN [Concomitant]
     Dosage: UNK
  7. ZYRTEC [Concomitant]
     Indication: MYCOTIC ALLERGY
     Dosage: TWO TIMES A DAY
  8. CETIRIZINE/PSEUDOEPHEDRINE [Concomitant]
     Indication: HYPERSENSITIVITY
     Dosage: UNK
  9. IBUPROFEN [Concomitant]
     Dosage: UNK

REACTIONS (20)
  - Nervous system disorder [Unknown]
  - Oesophageal spasm [Recovered/Resolved]
  - Swelling face [Recovered/Resolved]
  - Diaphragmatic disorder [Unknown]
  - Dyspnoea [Unknown]
  - Constipation [Not Recovered/Not Resolved]
  - Weight increased [Unknown]
  - Abdominal distension [Unknown]
  - Blood cholesterol increased [Unknown]
  - Dry mouth [Unknown]
  - Poor quality sleep [Not Recovered/Not Resolved]
  - Withdrawal syndrome [Unknown]
  - Feeling abnormal [Not Recovered/Not Resolved]
  - Fatigue [Not Recovered/Not Resolved]
  - Insomnia [Not Recovered/Not Resolved]
  - Nausea [Not Recovered/Not Resolved]
  - Paraesthesia [Unknown]
  - Hypoaesthesia [Unknown]
  - Therapeutic response unexpected [Unknown]
  - Off label use [Unknown]
